FAERS Safety Report 7396111-1 (Version None)
Quarter: 2011Q2

REPORT INFORMATION
  Report Type: 
  Country: None (occurrence: None)
  Receive Date: 20110406
  Receipt Date: 20090726
  Transmission Date: 20111010
  Serious: Yes (Death, Other)
  Sender: FDA-Public Use
  Company Number: US-BAYER-200927994NA

PATIENT
  Sex: Male
  Weight: 77 kg

DRUGS (14)
  1. ACCUPRIL [Concomitant]
     Dosage: 20 MG, QD
     Route: 048
     Dates: start: 19920101
  2. SUCCINYLCHOLINE CHLORIDE [Concomitant]
  3. ACETYLSALICYLIC ACID SRT [Concomitant]
     Dosage: 81 MG, QD
     Route: 048
     Dates: start: 19920101
  4. ALBUTEROL [Concomitant]
     Route: 045
  5. VERSED [Concomitant]
  6. TRASYLOL [Suspect]
     Indication: CORONARY ARTERY BYPASS
     Route: 042
     Dates: start: 20050819
  7. TOPROL-XL [Concomitant]
     Dosage: 50 MG, QD
     Route: 048
     Dates: start: 20031213
  8. HEPARIN SODIUM [Concomitant]
  9. SPIRIVA [Concomitant]
     Route: 045
  10. NITROGLYCERIN [Concomitant]
  11. MAXZIDE [Concomitant]
     Dosage: 25-35.5 MG 0.5 TAB
     Route: 048
  12. ZANTAC [Concomitant]
     Dosage: 150 MG, BID
     Route: 048
  13. PROTAMINE SULFATE [Concomitant]
  14. ISOFLURANE [Concomitant]

REACTIONS (11)
  - FEAR [None]
  - ANHEDONIA [None]
  - UNEVALUABLE EVENT [None]
  - RENAL FAILURE ACUTE [None]
  - RENAL FAILURE [None]
  - INJURY [None]
  - PAIN [None]
  - ANXIETY [None]
  - DEPRESSION [None]
  - DEATH [None]
  - MYOCARDIAL INFARCTION [None]
